FAERS Safety Report 9535925 (Version 1)
Quarter: 2013Q2

REPORT INFORMATION
  Report Type: Spontaneous
  Country: US (occurrence: None)
  Receive Date: 20130507
  Receipt Date: 20130507
  Transmission Date: 20140414
  Serious: Yes (Other)
  Sender: FDA-Public Use
  Company Number: PHEH2013US002273

PATIENT
  Age: 26 Year
  Sex: Female

DRUGS (8)
  1. AFINITOR (RAD) UNKNOWN [Suspect]
     Indication: TUBEROUS SCLEROSIS
     Route: 048
     Dates: start: 20130111
  2. PLAQUENIL (HYDROCHLOROQUINE SULFATE) [Concomitant]
  3. NORETHINDRONE (NORETHISTERONE) [Concomitant]
  4. LISINOPRIL [Concomitant]
  5. VITAMIN C [Concomitant]
  6. CALCIUM + VITAMIN D (CALCIUM CARBONATE, COLECALCIFEROL) [Concomitant]
  7. THYROID THERAPY (NO INGREDIENTS/ SUBSTANCES) [Concomitant]
  8. SULFASALAZINE [Concomitant]

REACTIONS (12)
  - Gastroenteritis [None]
  - Arthritis [None]
  - Peripheral coldness [None]
  - Back pain [None]
  - Headache [None]
  - Oral pain [None]
  - Blood pressure increased [None]
  - Stomatitis [None]
  - Abdominal pain [None]
  - Decreased appetite [None]
  - Nausea [None]
  - Vomiting [None]
